FAERS Safety Report 8062623-0 (Version None)
Quarter: 2012Q1

REPORT INFORMATION
  Report Type: 
  Country: None (occurrence: None)
  Receive Date: 20120123
  Receipt Date: 20120113
  Transmission Date: 20120608
  Serious: Yes (Other)
  Sender: FDA-Public Use
  Company Number: BR-ASTELLAS-2011US007108

PATIENT
  Sex: Male
  Weight: 81 kg

DRUGS (14)
  1. PREDNISONE [Suspect]
     Dosage: 12.5 MG, UID/QD
     Route: 048
     Dates: start: 20100410, end: 20100422
  2. PREDNISONE [Suspect]
     Dosage: 10 MG, UID/QD
     Route: 048
     Dates: start: 20100423, end: 20100520
  3. PREDNISONE [Suspect]
     Dosage: 7.5 MG, UID/QD
     Route: 048
     Dates: start: 20100521
  4. MYCOPHENOLATE MOFETIL [Suspect]
     Dosage: 360 MG, UNKNOWN/D
     Route: 048
     Dates: start: 20100409, end: 20100421
  5. PREDNISONE [Suspect]
     Dosage: 15 MG, UID/QD
     Route: 048
     Dates: start: 20100320, end: 20100409
  6. MYCOPHENOLATE MOFETIL [Suspect]
     Dosage: 720 MG, BID
     Dates: start: 20120106
  7. PREDNISONE [Suspect]
     Indication: RENAL TRANSPLANT
     Dosage: 20 MG, UID/QD
     Route: 048
     Dates: start: 20100123, end: 20100225
  8. MYCOPHENOLATE MOFETIL [Suspect]
     Dosage: 720 MG, UNKNOWN/D
     Route: 048
     Dates: start: 20100313, end: 20100408
  9. MYCOPHENOLATE MOFETIL [Suspect]
     Dosage: 1080 MG, UID/QD
     Route: 048
     Dates: start: 20100306, end: 20100312
  10. TACROLIMUS [Suspect]
     Indication: RENAL TRANSPLANT
     Dosage: 5 MG, BID
     Route: 048
     Dates: start: 20091228, end: 20111010
  11. MYCOPHENOLATE MOFETIL [Suspect]
     Indication: RENAL TRANSPLANT
     Dosage: 720 MG, UNKNOWN/D
     Route: 048
     Dates: start: 20091228, end: 20100305
  12. PREDNISONE [Suspect]
     Dosage: 17.5 MG, UID/QD
     Route: 048
     Dates: start: 20100226, end: 20100319
  13. MYCOPHENOLATE MOFETIL [Suspect]
     Dosage: 360 MG, BID
     Route: 048
     Dates: start: 20111004, end: 20120105
  14. MYCOPHENOLATE MOFETIL [Suspect]
     Dosage: 1080 MG, UID/QD
     Route: 048
     Dates: start: 20100422, end: 20110927

REACTIONS (3)
  - RENAL TUBULAR ATROPHY [None]
  - KIDNEY FIBROSIS [None]
  - POLYOMAVIRUS-ASSOCIATED NEPHROPATHY [None]
